FAERS Safety Report 23731615 (Version 1)
Quarter: 2024Q2

REPORT INFORMATION
  Report Type: Other
  Country: PE (occurrence: None)
  Receive Date: 20240411
  Receipt Date: 20240411
  Transmission Date: 20240716
  Serious: Yes (Hospitalization)
  Sender: FDA-Public Use
  Company Number: PE-ROCHE-3540622

PATIENT
  Age: 81 Year
  Sex: Female

DRUGS (17)
  1. AVASTIN [Suspect]
     Active Substance: BEVACIZUMAB
     Indication: Rectal cancer metastatic
     Dosage: 4 COURSES
     Route: 065
  2. CAPECITABINE [Suspect]
     Active Substance: CAPECITABINE
     Indication: Rectal cancer metastatic
     Dosage: 4 COURSES
     Route: 048
  3. SODIUM CHLORIDE [Concomitant]
     Active Substance: SODIUM CHLORIDE
     Dosage: 90 MINUTES IN THE FIRST TIME, 60 MINUTES IN THE SECOND AND 30 MINUTES IN THE THIRD AND?OTHERS
     Route: 042
     Dates: start: 20240130
  4. OXALIPLATIN [Concomitant]
     Active Substance: OXALIPLATIN
     Indication: Rectal cancer metastatic
     Dosage: 4 COURSES
  5. LEUCOVORIN [Concomitant]
     Active Substance: LEUCOVORIN\LEUCOVORIN CALCIUM
     Indication: Rectal cancer metastatic
     Dosage: DEXTROSE IN DISTILLED WATER 5% 500 ML?IN 120 MINUTES, DAY 1
     Route: 042
     Dates: start: 20240130
  6. FLUOROURACIL [Concomitant]
     Active Substance: FLUOROURACIL
     Indication: Rectal cancer metastatic
     Dosage: SODIUM CHLORIDE 0.9% 100ML?IN 10 MINUTES, DAY 1
     Route: 042
     Dates: start: 20240130
  7. FLUOROURACIL [Concomitant]
     Active Substance: FLUOROURACIL
     Dosage: SODIUM CHLORIDE 0.9% 1000ML?IN 46 HOURS, DAY 1
     Route: 042
     Dates: start: 20240130
  8. IRINOTECAN [Concomitant]
     Active Substance: IRINOTECAN
     Indication: Rectal cancer metastatic
     Dosage: DEXTROSE IN DISTILLED WATER 5% 500 ML?IN 120 MINUTES, DAY 1, IN Y WITH LEUCOVORIN
     Route: 042
     Dates: start: 20240130
  9. CHLORPHENIRAMINE [Concomitant]
     Active Substance: CHLORPHENIRAMINE
     Dosage: SODIUM CHLORIDE 0.9% 20ML?IN 10 MINUTES, DAY 1
     Route: 042
  10. RANITIDINE [Concomitant]
     Active Substance: RANITIDINE
     Dosage: SODIUM CHLORIDE 0.9% 100ML?IN 10 MINUTES, DAY 1
     Route: 042
  11. DEXAMETHASONE [Concomitant]
     Active Substance: DEXAMETHASONE
     Dosage: IN 15 MINUTES, DAY 1
     Route: 042
  12. DEXAMETHASONE [Concomitant]
     Active Substance: DEXAMETHASONE
     Dosage: DURATION: 02 DAYS; QUANTITY: 04 TABLETS
     Route: 048
  13. ONDANSETRON [Concomitant]
     Active Substance: ONDANSETRON
     Dosage: IN 15 MINUTES, DAY 1
     Route: 042
  14. APREPITANT [Concomitant]
     Active Substance: APREPITANT
     Dosage: 1 HOURS BEFORE THE CHEMOTHERAPY START
     Route: 048
  15. APREPITANT [Concomitant]
     Active Substance: APREPITANT
     Dosage: DURATION: 02 DAYS; QUANTITY: 02 CAPSULES
     Route: 048
  16. DIMENHYDRINATE [Concomitant]
     Active Substance: DIMENHYDRINATE
     Dosage: CONDITIONAL TO NAUSEAS, QUANTITY: 15 TABLETS
     Route: 048
  17. LOPERAMIDE [Concomitant]
     Active Substance: LOPERAMIDE
     Dosage: CONDITIONAL TO DIARRHEA, DURATION: 02 DAYS; QUANTITY: 06 TABLETS
     Route: 048

REACTIONS (5)
  - Diarrhoea [Unknown]
  - Syncope [Unknown]
  - Renal failure [Unknown]
  - Electrolyte imbalance [Unknown]
  - Vomiting [Unknown]

NARRATIVE: CASE EVENT DATE: 20240101
